FAERS Safety Report 13850397 (Version 1)
Quarter: 2017Q3

REPORT INFORMATION
  Report Type: Spontaneous
  Country: ES (occurrence: ES)
  Receive Date: 20170809
  Receipt Date: 20170809
  Transmission Date: 20171127
  Serious: Yes (Other)
  Sender: FDA-Public Use
  Company Number: ES-PFM-2017-06704

PATIENT

DRUGS (5)
  1. ORFIDAL [Concomitant]
     Active Substance: LORAZEPAM
     Indication: ANXIETY
     Dosage: 1 MG, QD (1/DAY)
     Route: 048
     Dates: start: 20110701
  2. NAVELBINE [Suspect]
     Active Substance: VINORELBINE TARTRATE
     Indication: BREAST CANCER
     Dosage: 3 DF, WEEKLY
     Route: 048
     Dates: start: 20130604
  3. ELONTRIL [Concomitant]
     Active Substance: BUPROPION HYDROCHLORIDE
     Indication: PERSISTENT DEPRESSIVE DISORDER
     Dosage: 300 MG, QD (1/DAY)
     Route: 048
     Dates: start: 20110301
  4. TRADONAL [Concomitant]
     Active Substance: TRAMADOL HYDROCHLORIDE
     Indication: TENDONITIS
     Dosage: 50 MG, BID (2/DAY)
     Route: 048
     Dates: start: 20130403
  5. RANITIDINA CINFA [Concomitant]
     Indication: DYSPEPSIA
     Dosage: 300 MG, QD (1/DAY)
     Route: 048
     Dates: start: 20130717

REACTIONS (1)
  - Optic nerve disorder [Not Recovered/Not Resolved]

NARRATIVE: CASE EVENT DATE: 20160112
